FAERS Safety Report 6860613-4 (Version None)
Quarter: 2010Q3

REPORT INFORMATION
  Report Type: 
  Country: None (occurrence: None)
  Receive Date: 20100720
  Receipt Date: 20100716
  Transmission Date: 20110219
  Serious: Yes (Hospitalization)
  Sender: FDA-Public Use
  Company Number: US-GILEAD-2010-0030353

PATIENT
  Sex: Male
  Weight: 47.216 kg

DRUGS (15)
  1. LETAIRIS [Suspect]
     Indication: PULMONARY ARTERIAL HYPERTENSION
     Dates: start: 20100121
  2. ASPIRIN [Concomitant]
  3. HYDROCHLOROTH [Concomitant]
  4. COREG [Concomitant]
  5. NITROGLYCERIN [Concomitant]
  6. ATIVAN [Concomitant]
  7. METHOCARBAMOL [Concomitant]
  8. ADVAIR DISKUS 100/50 [Concomitant]
  9. ALBUTEROL [Concomitant]
  10. CLOTRIMAZOLE [Concomitant]
  11. SINGULAIR [Concomitant]
  12. LEVOTHROID [Concomitant]
  13. LORTAB [Concomitant]
  14. METANX [Concomitant]
  15. SIMVASTATIN [Concomitant]

REACTIONS (2)
  - CHRONIC OBSTRUCTIVE PULMONARY DISEASE [None]
  - OXYGEN SATURATION DECREASED [None]
